FAERS Safety Report 8035625-8 (Version None)
Quarter: 2012Q1

REPORT INFORMATION
  Report Type: 
  Country: None (occurrence: None)
  Receive Date: 20120110
  Receipt Date: 20120110
  Transmission Date: 20120608
  Serious: No
  Sender: FDA-Public Use
  Company Number: None

PATIENT
  Age: 62 Year
  Sex: Male
  Weight: 86.4 kg

DRUGS (1)
  1. TUBERCULIN NOS [Suspect]
     Indication: IMMUNISATION
     Dosage: .1 ML ONCE IM
     Route: 030
     Dates: start: 20110503, end: 20110503

REACTIONS (3)
  - DERMATITIS ALLERGIC [None]
  - TUBERCULIN TEST POSITIVE [None]
  - RASH [None]
